FAERS Safety Report 17435031 (Version 1)
Quarter: 2020Q1

REPORT INFORMATION
  Report Type: Spontaneous
  Country: US (occurrence: US)
  Receive Date: 20200204
  Receipt Date: 20200204
  Transmission Date: 20200409
  Serious: Yes (Hospitalization)
  Sender: FDA-Public Use
  Company Number: None

PATIENT
  Sex: Female

DRUGS (1)
  1. VIGABATRIN POWDER 500MG PAR [Suspect]
     Active Substance: VIGABATRIN
     Indication: EPILEPSY
     Dosage: 1000MG IN THE MORNING   1500 MG IN THE EVENING
     Route: 048
     Dates: start: 201912

REACTIONS (3)
  - Lung disorder [None]
  - Tooth disorder [None]
  - Lung operation [None]
